FAERS Safety Report 8658194 (Version 2)
Quarter: 2013Q2

REPORT INFORMATION
  Report Type: Spontaneous
  Country: US (occurrence: US)
  Receive Date: 20120710
  Receipt Date: 20130419
  Transmission Date: 20140414
  Serious: Yes (Death, Hospitalization)
  Sender: FDA-Public Use
  Company Number: US-GLAXOSMITHKLINE-A0793820A

PATIENT
  Age: 60 Year
  Sex: Female

DRUGS (1)
  1. AVANDIA [Suspect]
     Indication: TYPE 2 DIABETES MELLITUS
     Dosage: 8MG PER DAY
     Route: 048
     Dates: start: 199908, end: 200710

REACTIONS (9)
  - Haemorrhage intracranial [Fatal]
  - Cerebrovascular accident [Unknown]
  - Paralysis [Unknown]
  - Anaemia [Unknown]
  - Speech disorder [Unknown]
  - Depression [Unknown]
  - Oedema [Unknown]
  - Condition aggravated [Unknown]
  - Transient ischaemic attack [Unknown]
